FAERS Safety Report 16074705 (Version 2)
Quarter: 2020Q2

REPORT INFORMATION
  Report Type: Spontaneous
  Country: CA (occurrence: CA)
  Receive Date: 20190314
  Receipt Date: 20200504
  Transmission Date: 20200713
  Serious: Yes (Life-Threatening, Hospitalization, Other)
  Sender: FDA-Public Use
  Company Number: CA-BAXTER-2019BAX005016

PATIENT
  Age: 57 Year
  Sex: Male

DRUGS (23)
  1. SUCCINYLCHOLINE CHLORIDE. [Suspect]
     Active Substance: SUCCINYLCHOLINE CHLORIDE
     Indication: INDUCTION OF ANAESTHESIA
     Dosage: DOSAGE FORM: LIQUID INTRAVENOUS
     Route: 065
  2. DEXMEDETOMIDINE. [Concomitant]
     Active Substance: DEXMEDETOMIDINE
     Indication: ANAESTHESIA PROCEDURE
  3. SEVOFLURANE. [Suspect]
     Active Substance: SEVOFLURANE
     Indication: MAINTENANCE OF ANAESTHESIA
     Dosage: DOSAGE FORM: INHALATION VAPOUR, LIQUID
     Route: 042
  4. SEVOFLURANE. [Suspect]
     Active Substance: SEVOFLURANE
     Indication: GENERAL ANAESTHESIA
     Dosage: DOSAGE FORM: LIQUID INHALATION
     Route: 050
  5. PROPOFOL. [Suspect]
     Active Substance: PROPOFOL
     Indication: GENERAL ANAESTHESIA
     Dosage: DOSAGE FORM: EMULSION
     Route: 050
  6. PROPOFOL. [Suspect]
     Active Substance: PROPOFOL
     Indication: INDUCTION OF ANAESTHESIA
     Dosage: DOSAGE FORM: EMULSION FOR INJECTION
     Route: 065
  7. FENTANYL CITRATE. [Suspect]
     Active Substance: FENTANYL CITRATE
     Indication: INDUCTION OF ANAESTHESIA
     Dosage: DOSAGE FORM: LIQUID EPIDURAL
     Route: 065
  8. REMIFENTANIL [Suspect]
     Active Substance: REMIFENTANIL
     Indication: PRODUCT USED FOR UNKNOWN INDICATION
     Dosage: DOSAGE FORM: POWDER FOR SOLUTION INTRAVENOUS
     Route: 042
  9. HYDROMORPHONE HYDROCHLORIDE. [Suspect]
     Active Substance: HYDROMORPHONE HYDROCHLORIDE
     Indication: ANAESTHESIA PROCEDURE
     Route: 065
  10. MIDAZOLAM. [Suspect]
     Active Substance: MIDAZOLAM
     Indication: ANAESTHESIA
     Route: 030
  11. HYDROMORPHONE [Suspect]
     Active Substance: HYDROMORPHONE
     Indication: PRODUCT USED FOR UNKNOWN INDICATION
     Dosage: DOSAGE FORM: NOT SPECIFIED
     Route: 065
  12. DEXMEDETOMIDINE. [Concomitant]
     Active Substance: DEXMEDETOMIDINE
     Indication: INDUCTION OF ANAESTHESIA
     Dosage: DOSAGE FORM; NOT SPECIFIED
     Route: 065
  13. SUPRANE [Suspect]
     Active Substance: DESFLURANE
     Indication: GENERAL ANAESTHESIA
     Dosage: DOSAGE FORM: INHALATION VAPOUR, LIQUID
     Route: 065
  14. FENTANYL CITRATE. [Suspect]
     Active Substance: FENTANYL CITRATE
     Indication: GENERAL ANAESTHESIA
     Route: 065
  15. SUCCINYLCHOLINE CHLORIDE. [Suspect]
     Active Substance: SUCCINYLCHOLINE CHLORIDE
     Indication: PRODUCT USED FOR UNKNOWN INDICATION
     Route: 042
  16. MIDAZOLAM. [Suspect]
     Active Substance: MIDAZOLAM
     Indication: INDUCTION OF ANAESTHESIA
     Dosage: DOSAGE FORM: SOLUTION FOR INJECTION
     Route: 042
  17. MIDAZOLAM. [Suspect]
     Active Substance: MIDAZOLAM
     Indication: GENERAL ANAESTHESIA
     Route: 042
  18. SUPRANE [Suspect]
     Active Substance: DESFLURANE
     Indication: PRODUCT USED FOR UNKNOWN INDICATION
     Dosage: DOSAGE FORM: LIQUID INHALATION
     Route: 055
  19. HYDROMORPHONE HYDROCHLORIDE. [Suspect]
     Active Substance: HYDROMORPHONE HYDROCHLORIDE
     Indication: MAINTENANCE OF ANAESTHESIA
     Route: 065
  20. DEXMEDETOMIDINE HYDROCHLORIDE. [Suspect]
     Active Substance: DEXMEDETOMIDINE HYDROCHLORIDE
     Indication: PRODUCT USED FOR UNKNOWN INDICATION
     Route: 065
  21. DEXMEDETOMIDINE. [Concomitant]
     Active Substance: DEXMEDETOMIDINE
     Indication: MAINTENANCE OF ANAESTHESIA
     Dosage: DOSAGE FORM: NOT SPECIFIED
     Route: 042
  22. SUPRANE [Suspect]
     Active Substance: DESFLURANE
     Indication: MAINTENANCE OF ANAESTHESIA
     Dosage: DOSAGE FORM: LIQUID INHALATION
     Route: 065
  23. REMIFENTANIL [Suspect]
     Active Substance: REMIFENTANIL
     Indication: INDUCTION OF ANAESTHESIA
     Dosage: DOSAGE FORM: POWDER FOR SOLUTION INTRAVENOUS
     Route: 042

REACTIONS (1)
  - Seizure like phenomena [Recovered/Resolved]
